FAERS Safety Report 23076859 (Version 1)
Quarter: 2023Q4

REPORT INFORMATION
  Report Type: Report from Study
  Country: US (occurrence: US)
  Receive Date: 20231018
  Receipt Date: 20231018
  Transmission Date: 20240109
  Serious: Yes (Hospitalization)
  Sender: FDA-Public Use
  Company Number: US-ABBVIE-5396188

PATIENT

DRUGS (1)
  1. IMBRUVICA [Suspect]
     Active Substance: IBRUTINIB
     Indication: Chronic lymphocytic leukaemia
     Route: 048
     Dates: start: 20171002

REACTIONS (5)
  - COVID-19 [Unknown]
  - Insomnia [Not Recovered/Not Resolved]
  - Urinary tract infection [Unknown]
  - Influenza [Unknown]
  - Pneumonia [Unknown]
